FAERS Safety Report 10908136 (Version 1)
Quarter: 2015Q1

REPORT INFORMATION
  Report Type: Spontaneous
  Country: US (occurrence: None)
  Receive Date: 20150309
  Receipt Date: 20150309
  Transmission Date: 20150721
  Serious: Yes (Disabling)
  Sender: FDA-Public Use
  Company Number: None

PATIENT
  Age: 36 Year
  Sex: Female
  Weight: 61.24 kg

DRUGS (5)
  1. CIPROFLOXACIN HCL 250 MG TAB 250 MG DR. REDD^S LAB [Suspect]
     Active Substance: CIPROFLOXACIN HYDROCHLORIDE
     Indication: DIARRHOEA
     Dosage: 1 TAB EVERY 12 HOURS
     Route: 048
     Dates: start: 20150303, end: 20150304
  2. IBUPROFEN. [Concomitant]
     Active Substance: IBUPROFEN
  3. CIPROFLOXACIN HCL 250 MG TAB 250 MG DR. REDD^S LAB [Suspect]
     Active Substance: CIPROFLOXACIN HYDROCHLORIDE
     Indication: ABDOMINAL PAIN UPPER
     Dosage: 1 TAB EVERY 12 HOURS
     Route: 048
     Dates: start: 20150303, end: 20150304
  4. CIPROFLOXACIN HCL 250 MG TAB 250 MG DR. REDD^S LAB [Suspect]
     Active Substance: CIPROFLOXACIN HYDROCHLORIDE
     Indication: FLATULENCE
     Dosage: 1 TAB EVERY 12 HOURS
     Route: 048
     Dates: start: 20150303, end: 20150304
  5. CIPROFLOXACIN HCL 250 MG TAB 250 MG DR. REDD^S LAB [Suspect]
     Active Substance: CIPROFLOXACIN HYDROCHLORIDE
     Indication: PAIN
     Dosage: 1 TAB EVERY 12 HOURS
     Route: 048
     Dates: start: 20150303, end: 20150304

REACTIONS (2)
  - Musculoskeletal stiffness [None]
  - Myalgia [None]

NARRATIVE: CASE EVENT DATE: 20150304
